FAERS Safety Report 24794643 (Version 1)
Quarter: 2024Q4

REPORT INFORMATION
  Report Type: Spontaneous
  Country: US (occurrence: US)
  Receive Date: 20241231
  Receipt Date: 20241231
  Transmission Date: 20250115
  Serious: Yes (Other)
  Sender: JOHNSON AND JOHNSON
  Company Number: US-JNJFOC-20241248336

PATIENT

DRUGS (1)
  1. RYBREVANT [Suspect]
     Active Substance: AMIVANTAMAB-VMJW
     Indication: Product used for unknown indication
     Route: 065

REACTIONS (11)
  - Thrombosis [Unknown]
  - Rash [Unknown]
  - Pruritus [Unknown]
  - Dry skin [Unknown]
  - Nail infection [Unknown]
  - Oedema [Unknown]
  - Oedema peripheral [Unknown]
  - Dyspnoea [Unknown]
  - Fatigue [Unknown]
  - Acne [Unknown]
  - Cellulitis [Unknown]
